FAERS Safety Report 18868796 (Version 1)
Quarter: 2021Q1

REPORT INFORMATION
  Report Type: Report from Study
  Country: None (occurrence: AU)
  Receive Date: 20210209
  Receipt Date: 20210209
  Transmission Date: 20210420
  Serious: Yes (Other)
  Sender: FDA-Public Use
  Company Number: AU-ABBVIE-20P-008-3585789-00

PATIENT
  Sex: Male

DRUGS (1)
  1. IMBRUVICA [Suspect]
     Active Substance: IBRUTINIB
     Indication: EXTRANODAL MARGINAL ZONE B-CELL LYMPHOMA (MALT TYPE)
     Route: 048

REACTIONS (4)
  - Cardiac failure [Unknown]
  - Gastrointestinal haemorrhage [Unknown]
  - Product use in unapproved indication [Unknown]
  - Off label use [Unknown]
